FAERS Safety Report 5796292-7 (Version None)
Quarter: 2008Q2

REPORT INFORMATION
  Report Type: 
  Country: None (occurrence: None)
  Receive Date: 20080627
  Receipt Date: 20080618
  Transmission Date: 20081010
  Serious: Yes (Hospitalization)
  Sender: FDA-Public Use
  Company Number: 2008AP001592

PATIENT
  Age: 47 Year
  Sex: Male

DRUGS (4)
  1. TRAMADOL HYDROCHLORIDE [Suspect]
     Indication: ARTHRALGIA
  2. FLEXERIL [Suspect]
  3. METFORMIN HCL [Concomitant]
  4. OLMESARTAN MEDOXOMIL [Concomitant]

REACTIONS (3)
  - HEADACHE [None]
  - HEART RATE INCREASED [None]
  - HYPERTENSION [None]
